FAERS Safety Report 23874546 (Version 1)
Quarter: 2024Q2

REPORT INFORMATION
  Report Type: Spontaneous
  Country: US (occurrence: US)
  Receive Date: 20240520
  Receipt Date: 20240520
  Transmission Date: 20240716
  Serious: Yes (Hospitalization)
  Sender: FDA-Public Use
  Company Number: US-NOVOPROD-1220229

PATIENT
  Age: 69 Year
  Sex: Female

DRUGS (1)
  1. OZEMPIC [Suspect]
     Active Substance: SEMAGLUTIDE
     Indication: Product used for unknown indication
     Dosage: UNK
     Route: 058

REACTIONS (6)
  - Chills [Not Recovered/Not Resolved]
  - Spinal fracture [Unknown]
  - Vomiting [Not Recovered/Not Resolved]
  - Weight increased [Unknown]
  - Limb injury [Unknown]
  - Product dose omission issue [Unknown]
